FAERS Safety Report 9863712 (Version 1)
Quarter: 2014Q1

REPORT INFORMATION
  Report Type: Spontaneous
  Country: FR (occurrence: FR)
  Receive Date: 20140203
  Receipt Date: 20140203
  Transmission Date: 20141002
  Serious: Yes (Hospitalization)
  Sender: FDA-Public Use
  Company Number: FR-ABBVIE-14P-056-1196968-00

PATIENT
  Age: 44 Year
  Sex: Female

DRUGS (4)
  1. SODIUM VALPROATE [Suspect]
     Indication: EPILEPSY
     Route: 048
     Dates: end: 20131214
  2. FLOXYFRAL [Suspect]
     Indication: DEPRESSION
     Route: 048
     Dates: end: 20131214
  3. CLOZAPIN [Suspect]
     Indication: SCHIZOPHRENIA
     Route: 048
     Dates: end: 20131214
  4. XANAX [Suspect]
     Indication: ANXIETY
     Route: 048
     Dates: end: 20131214

REACTIONS (1)
  - Hepatitis cholestatic [Recovering/Resolving]
